FAERS Safety Report 17760949 (Version 3)
Quarter: 2020Q3

REPORT INFORMATION
  Report Type: Spontaneous
  Country: US (occurrence: US)
  Receive Date: 20200508
  Receipt Date: 20200828
  Transmission Date: 20201102
  Serious: Yes (Other)
  Sender: FDA-Public Use
  Company Number: US-PFIZER INC-2020183418

PATIENT
  Sex: Female
  Weight: 77.11 kg

DRUGS (2)
  1. DETROL LA [Suspect]
     Active Substance: TOLTERODINE TARTRATE
     Indication: URINARY INCONTINENCE
     Dosage: 4 MG, DAILY (1 TABLET BY MOUTH DAILY BEFORE BEDTIME)
     Route: 048
  2. DETROL LA [Suspect]
     Active Substance: TOLTERODINE TARTRATE
     Indication: HYPERTONIC BLADDER
     Dosage: UNK

REACTIONS (3)
  - Fall [Unknown]
  - Gait disturbance [Unknown]
  - Spinal column injury [Unknown]

NARRATIVE: CASE EVENT DATE: 2012
